FAERS Safety Report 7723525-X (Version None)
Quarter: 2011Q3

REPORT INFORMATION
  Report Type: 
  Country: None (occurrence: None)
  Receive Date: 20110826
  Receipt Date: 20110812
  Transmission Date: 20111222
  Serious: Yes (Hospitalization)
  Sender: FDA-Public Use
  Company Number: THQ2011A03417

PATIENT
  Age: 59 Year
  Sex: Male

DRUGS (6)
  1. ACTOS [Suspect]
     Indication: DIABETES MELLITUS
     Dosage: 15 MG, (1 D), PER ORAL
     Route: 048
     Dates: start: 20080101
  2. ACTOS [Suspect]
     Indication: INSULIN RESISTANCE
     Dosage: 15 MG, (1 D), PER ORAL
     Route: 048
     Dates: start: 20080101
  3. CRESTOR [Concomitant]
  4. METFORMIN HCL [Concomitant]
  5. AMARYL [Concomitant]
  6. LIPITOR [Concomitant]

REACTIONS (2)
  - BENIGN PROSTATIC HYPERPLASIA [None]
  - BLADDER TRANSITIONAL CELL CARCINOMA STAGE 0 [None]
